FAERS Safety Report 4516211-0 (Version None)
Quarter: 2004Q4

REPORT INFORMATION
  Report Type: 
  Country: None (occurrence: None)
  Receive Date: 20041005
  Receipt Date: 20040707
  Transmission Date: 20050328
  Serious: Yes (Other)
  Sender: FDA-Public Use
  Company Number: US-JNJFOC-20040406074

PATIENT
  Age: 6 Year
  Sex: Male

DRUGS (1)
  1. CONCERTA [Suspect]
     Indication: ATTENTION DEFICIT/HYPERACTIVITY DISORDER
     Dosage: 27 MG, 1 IN 1 DAY, ORAL
     Route: 048
     Dates: start: 20031106

REACTIONS (1)
  - CONVULSION [None]
